FAERS Safety Report 9069616 (Version 1)
Quarter: 2013Q1

REPORT INFORMATION
  Report Type: Report from Study
  Country: US (occurrence: US)
  Receive Date: 20130131
  Receipt Date: 20130131
  Transmission Date: 20140127
  Serious: No
  Sender: FDA-Public Use
  Company Number: US-ABBOTT-12P-163-1002151-00

PATIENT
  Age: 59 Year
  Sex: Female

DRUGS (15)
  1. HUMIRA [Suspect]
     Indication: RHEUMATOID ARTHRITIS
     Dosage: THE FIRST AND FIFTEENTH OF EVERY MONTH
     Dates: start: 20121001
  2. LIPITOR [Concomitant]
     Indication: BLOOD CHOLESTEROL INCREASED
  3. NORVASC [Concomitant]
     Indication: CARDIOVASCULAR EVENT PROPHYLAXIS
  4. CYMBALTA [Concomitant]
     Indication: DEPRESSION
  5. RAMIPRIL [Concomitant]
     Indication: CARDIOVASCULAR EVENT PROPHYLAXIS
  6. ARAVA [Concomitant]
     Indication: RHEUMATOID ARTHRITIS
  7. DIGOXIN [Concomitant]
     Indication: CARDIOVASCULAR EVENT PROPHYLAXIS
  8. NEXIUM [Concomitant]
     Indication: PROPHYLAXIS
  9. LASIX [Concomitant]
     Indication: SWELLING
  10. TRAZODONE [Concomitant]
     Indication: INSOMNIA
     Dosage: AT NIGHT
  11. XANAX [Concomitant]
     Indication: PRODUCT USED FOR UNKNOWN INDICATION
  12. COREG [Concomitant]
     Indication: CARDIOVASCULAR EVENT PROPHYLAXIS
  13. GLUCOPHAGE [Concomitant]
     Indication: DIABETES MELLITUS
  14. POTASSIUM [Concomitant]
     Indication: PRODUCT USED FOR UNKNOWN INDICATION
  15. PREDNISONE [Concomitant]
     Indication: RHEUMATOID ARTHRITIS

REACTIONS (1)
  - Injection site pain [Recovered/Resolved]
